FAERS Safety Report 21648806 (Version 1)
Quarter: 2022Q4

REPORT INFORMATION
  Report Type: Spontaneous
  Country: AE (occurrence: AE)
  Receive Date: 20221128
  Receipt Date: 20221128
  Transmission Date: 20230113
  Serious: No
  Sender: FDA-Public Use
  Company Number: AE-ALKEM LABORATORIES LIMITED-AE-ALKEM-2022-12791

PATIENT

DRUGS (1)
  1. TACROLIMUS [Suspect]
     Active Substance: TACROLIMUS
     Indication: Transplant recipient
     Dosage: UNK
     Route: 065

REACTIONS (1)
  - Radiculitis brachial [Recovering/Resolving]
